FAERS Safety Report 10366773 (Version 2)
Quarter: 2014Q3

REPORT INFORMATION
  Report Type: Report from Study
  Country: US (occurrence: US)
  Receive Date: 20140806
  Receipt Date: 20140806
  Transmission Date: 20150326
  Serious: Yes (Hospitalization, Other)
  Sender: FDA-Public Use
  Company Number: US-ROCHE-1440612

PATIENT
  Age: 75 Year
  Sex: Female
  Weight: 51.3 kg

DRUGS (7)
  1. AVASTIN [Suspect]
     Active Substance: BEVACIZUMAB
     Indication: COLORECTAL CANCER
     Route: 050
     Dates: start: 20140520, end: 20140701
  2. ATIVAN [Concomitant]
     Active Substance: LORAZEPAM
  3. TOPIRAMATE. [Concomitant]
     Active Substance: TOPIRAMATE
  4. 5-FLUOROURACIL [Concomitant]
     Active Substance: FLUOROURACIL
     Indication: COLORECTAL CANCER
     Route: 050
     Dates: start: 20140520, end: 20140701
  5. CELEXA (UNITED STATES) [Concomitant]
  6. FOLINIC ACID [Concomitant]
     Active Substance: LEUCOVORIN
     Indication: COLORECTAL CANCER
     Dosage: INFUSION
     Route: 050
     Dates: start: 20140520, end: 20140701
  7. IRINOTECAN HYDROCHLORIDE. [Concomitant]
     Active Substance: IRINOTECAN HYDROCHLORIDE
     Indication: COLORECTAL CANCER
     Route: 050
     Dates: start: 20140520, end: 20140701

REACTIONS (4)
  - Rectal perforation [Unknown]
  - Rectal cancer recurrent [Recovered/Resolved]
  - Ulcer [Unknown]
  - Pain [Not Recovered/Not Resolved]

NARRATIVE: CASE EVENT DATE: 20140707
